FAERS Safety Report 10402834 (Version 1)
Quarter: 2014Q3

REPORT INFORMATION
  Report Type: Spontaneous
  Country: US (occurrence: None)
  Receive Date: 20140821
  Receipt Date: 20140821
  Transmission Date: 20150326
  Serious: Yes (Life-Threatening, Hospitalization)
  Sender: FDA-Public Use
  Company Number: None

PATIENT
  Age: 91 Year
  Sex: Female
  Weight: 59 kg

DRUGS (15)
  1. LATANOPROST. [Concomitant]
     Active Substance: LATANOPROST
  2. ONDANSETRON [Concomitant]
     Active Substance: ONDANSETRON
  3. ASPIRIN. [Concomitant]
     Active Substance: ASPIRIN
  4. NIFEREX [Concomitant]
     Active Substance: IRON\POLYSACCHARIDES
  5. CALCIUM+ D [Concomitant]
  6. ATROPINE OPTH DROPS [Concomitant]
  7. FAMOTIDINE. [Concomitant]
     Active Substance: FAMOTIDINE
  8. XARELTO [Suspect]
     Active Substance: RIVAROXABAN
     Indication: THROMBOSIS PROPHYLAXIS
     Route: 048
     Dates: end: 20140802
  9. BISACODYL. [Concomitant]
     Active Substance: BISACODYL
  10. TYLENOL [Concomitant]
     Active Substance: ACETAMINOPHEN
  11. MIRALAX [Concomitant]
     Active Substance: POLYETHYLENE GLYCOL 3350
  12. SINEMET [Concomitant]
     Active Substance: CARBIDOPA\LEVODOPA
  13. METOPROLOL [Concomitant]
     Active Substance: METOPROLOL
  14. PREDNISOLONE ACETATE OPT DROPS [Concomitant]
  15. METFORMIN [Concomitant]
     Active Substance: METFORMIN HYDROCHLORIDE

REACTIONS (4)
  - Disorientation [None]
  - Gait disturbance [None]
  - Headache [None]
  - Intracranial haematoma [None]

NARRATIVE: CASE EVENT DATE: 20140802
